FAERS Safety Report 19686787 (Version 1)
Quarter: 2021Q3

REPORT INFORMATION
  Report Type: Spontaneous
  Country: US (occurrence: US)
  Receive Date: 20210811
  Receipt Date: 20210811
  Transmission Date: 20211014
  Serious: No
  Sender: FDA-Public Use
  Company Number: US-MEDEXUS PHARMA, INC.-2021MED00046

PATIENT
  Sex: Female

DRUGS (1)
  1. RASUVO [Suspect]
     Active Substance: METHOTREXATE SODIUM
     Indication: ARTHRITIS
     Dosage: UNK

REACTIONS (7)
  - Peripheral swelling [Not Recovered/Not Resolved]
  - Pain in extremity [Not Recovered/Not Resolved]
  - Drug ineffective for unapproved indication [Recovered/Resolved]
  - Arthritis [Not Recovered/Not Resolved]
  - Spinal pain [Not Recovered/Not Resolved]
  - Unevaluable event [Unknown]
  - Arthralgia [Not Recovered/Not Resolved]
